FAERS Safety Report 4494240-3 (Version None)
Quarter: 2004Q4

REPORT INFORMATION
  Report Type: 
  Country: None (occurrence: None)
  Receive Date: 20041104
  Receipt Date: 20041104
  Transmission Date: 20050328
  Serious: Yes (Death, Life-Threatening, Hospitalization)
  Sender: FDA-Public Use
  Company Number: None

PATIENT
  Sex: Female
  Weight: 41.2773 kg

DRUGS (3)
  1. PLAVIX [Suspect]
     Indication: ANTIPLATELET THERAPY
     Dosage: 75 MG DAILY ORAL
     Route: 048
     Dates: start: 20040921, end: 20040927
  2. PLAVIX [Suspect]
     Indication: RHEUMATOID ARTHRITIS
     Dosage: 75 MG DAILY ORAL
     Route: 048
     Dates: start: 20040921, end: 20040927
  3. ARAVA [Suspect]
     Indication: RHEUMATOID ARTHRITIS
     Dates: start: 20040921, end: 20040927

REACTIONS (2)
  - CARDIO-RESPIRATORY ARREST [None]
  - STEVENS-JOHNSON SYNDROME [None]
